FAERS Safety Report 14908370 (Version 1)
Quarter: 2018Q2

REPORT INFORMATION
  Report Type: Report from Study
  Country: AR (occurrence: AR)
  Receive Date: 20180517
  Receipt Date: 20180517
  Transmission Date: 20180711
  Serious: Yes (Death, Other)
  Sender: FDA-Public Use
  Company Number: PHHY2018AR004648

PATIENT
  Sex: Male

DRUGS (1)
  1. PLOSTIM [Suspect]
     Active Substance: TIMOLOL MALEATE
     Indication: ANGLE CLOSURE GLAUCOMA
     Dosage: MORNING AND AT NIGHT ONE DROP
     Route: 065

REACTIONS (4)
  - Foaming at mouth [Fatal]
  - Confusional state [Unknown]
  - Infarction [Fatal]
  - Blindness [Unknown]
